FAERS Safety Report 17262332 (Version 1)
Quarter: 2020Q1

REPORT INFORMATION
  Report Type: Spontaneous
  Country: US (occurrence: US)
  Receive Date: 20200113
  Receipt Date: 20200113
  Transmission Date: 20200409
  Serious: Yes (Death, Hospitalization)
  Sender: FDA-Public Use
  Company Number: US-BAYER-2020-003261

PATIENT
  Age: 49 Year

DRUGS (9)
  1. CLOPIDOGREL [Suspect]
     Active Substance: CLOPIDOGREL BISULFATE
  2. METFORMIN [Suspect]
     Active Substance: METFORMIN HYDROCHLORIDE
     Route: 048
  3. ACETYLSALICYLIC ACID [Suspect]
     Active Substance: ASPIRIN
     Route: 048
  4. SITAGLIPTIN [Suspect]
     Active Substance: SITAGLIPTIN
  5. AMLODIPINE [Suspect]
     Active Substance: AMLODIPINE BESYLATE
  6. CARVEDILOL. [Suspect]
     Active Substance: CARVEDILOL
  7. PARACETAMOL [Suspect]
     Active Substance: ACETAMINOPHEN
     Route: 048
  8. GABAPENTIN. [Suspect]
     Active Substance: GABAPENTIN
  9. VORTIOXETINE. [Suspect]
     Active Substance: VORTIOXETINE

REACTIONS (1)
  - Toxicity to various agents [Fatal]
